FAERS Safety Report 16711850 (Version 3)
Quarter: 2019Q4

REPORT INFORMATION
  Report Type: Report from Study
  Country: TW (occurrence: TW)
  Receive Date: 20190816
  Receipt Date: 20191018
  Transmission Date: 20200122
  Serious: Yes (Death, Other)
  Sender: FDA-Public Use
  Company Number: PHHY2019TW190117

PATIENT
  Age: 66 Year
  Sex: Male

DRUGS (132)
  1. GLUCOSE [Concomitant]
     Active Substance: DEXTROSE
     Indication: DIABETES MELLITUS
     Dosage: 100 ML, UNK
     Route: 042
     Dates: start: 20171120, end: 20171120
  2. BISOPROLOL [Concomitant]
     Active Substance: BISOPROLOL
     Indication: HYPERTENSION
     Dosage: 1.25 MG, UNK
     Route: 048
     Dates: start: 20171124, end: 20171124
  3. BISOPROLOL [Concomitant]
     Active Substance: BISOPROLOL
     Dosage: 1.25 MG, UNK
     Route: 048
     Dates: start: 20171206, end: 20171206
  4. GLUCOPHAGE [Concomitant]
     Active Substance: METFORMIN HYDROCHLORIDE
     Indication: GOUT
     Dosage: 500 MG, UNK
     Route: 048
     Dates: start: 20180110, end: 20180126
  5. GLUCOPHAGE [Concomitant]
     Active Substance: METFORMIN HYDROCHLORIDE
     Dosage: 500 MG, UNK
     Route: 048
     Dates: start: 20180204, end: 20180205
  6. ISOPHANE INSULIN [Concomitant]
     Active Substance: INSULIN NOS
     Indication: DIABETES MELLITUS
     Dosage: 16 U, UNK
     Route: 058
     Dates: start: 20180307, end: 20180307
  7. INSULIN ASPART [Concomitant]
     Active Substance: INSULIN ASPART
     Indication: DIABETES MELLITUS
     Dosage: 6 U, UNK
     Route: 042
     Dates: start: 20171220, end: 20171221
  8. NOVOMIX [Concomitant]
     Active Substance: INSULIN ASPART
     Dosage: 14 U, UNK
     Route: 058
     Dates: start: 20180106, end: 20180106
  9. NOVOMIX [Concomitant]
     Active Substance: INSULIN ASPART
     Dosage: 18 U, UNK
     Route: 058
     Dates: start: 20180118, end: 20180119
  10. NPH INSULIN [Concomitant]
     Active Substance: INSULIN BEEF
     Indication: DIABETES MELLITUS
     Dosage: 4 U, UNK
     Route: 058
     Dates: start: 20180103, end: 20180103
  11. PANTOPRAZOLE [Concomitant]
     Active Substance: PANTOPRAZOLE
     Indication: ABDOMINAL DISCOMFORT
     Dosage: 40 MG, UNK
     Route: 042
     Dates: start: 20171124, end: 20171124
  12. SENNOSIDE [Concomitant]
     Active Substance: SENNOSIDES
     Dosage: 2 DF, UNK
     Route: 048
     Dates: start: 20180118, end: 20180204
  13. SILYMARIN [Concomitant]
     Active Substance: DIETARY SUPPLEMENT\HERBALS\MILK THISTLE
     Dosage: 150 MG, UNK
     Route: 048
     Dates: start: 20180205, end: 20180209
  14. SILYMARIN [Concomitant]
     Active Substance: DIETARY SUPPLEMENT\HERBALS\MILK THISTLE
     Dosage: 150 MG, UNK
     Route: 048
     Dates: start: 20180216
  15. VENACALO-B6 [Concomitant]
     Active Substance: CALCIUM BROMIDE\DIPHENHYDRAMINE HYDROCHLORIDE\PYRIDOXINE HYDROCHLORIDE
     Dosage: 1 DF, UNK
     Route: 042
     Dates: start: 20180124, end: 20180124
  16. VENACALO-B6 [Concomitant]
     Active Substance: CALCIUM BROMIDE\DIPHENHYDRAMINE HYDROCHLORIDE\PYRIDOXINE HYDROCHLORIDE
     Dosage: 1 DF, UNK
     Route: 042
     Dates: start: 20180213, end: 20180213
  17. TASIGNA [Suspect]
     Active Substance: NILOTINIB
     Indication: CHRONIC MYELOID LEUKAEMIA
     Dosage: 600 MG, UNK
     Route: 048
     Dates: start: 20160330, end: 20160601
  18. ACETAMINOPHEN. [Concomitant]
     Active Substance: ACETAMINOPHEN
     Indication: GOUT
     Dosage: 500 MG, UNK
     Route: 048
     Dates: start: 20171117, end: 20171124
  19. BISACODYL. [Concomitant]
     Active Substance: BISACODYL
     Dosage: 5 MG, UNK
     Route: 048
     Dates: start: 20180204, end: 20180204
  20. COZAAR [Concomitant]
     Active Substance: LOSARTAN POTASSIUM
     Indication: HYPERTENSION
     Dosage: 25 MG, UNK
     Route: 048
     Dates: start: 20171208, end: 20171218
  21. GLUCOPHAGE [Concomitant]
     Active Substance: METFORMIN HYDROCHLORIDE
     Dosage: 500 MG, UNK
     Route: 048
     Dates: start: 20180205, end: 20180215
  22. INSULIN ASPART [Concomitant]
     Active Substance: INSULIN ASPART
     Dosage: 4 U, UNK
     Route: 058
     Dates: start: 20180207, end: 20180213
  23. MAGNESIUM OXIDE. [Concomitant]
     Active Substance: MAGNESIUM OXIDE
     Dosage: 250 MG, UNK
     Route: 048
     Dates: start: 20180110, end: 20180114
  24. NOLIDIN [Concomitant]
     Indication: ABDOMINAL DISCOMFORT
     Dosage: 1 DF, UNK
     Route: 048
     Dates: start: 20171230, end: 20180103
  25. NOVOMIX [Concomitant]
     Active Substance: INSULIN ASPART
     Dosage: 14 U, UNK
     Route: 058
     Dates: start: 20180119, end: 20180123
  26. NPH INSULIN [Concomitant]
     Active Substance: INSULIN BEEF
     Dosage: 26 U, UNK
     Route: 058
     Dates: start: 20180106, end: 20180106
  27. NPH INSULIN [Concomitant]
     Active Substance: INSULIN BEEF
     Dosage: 6 U, UNK
     Route: 058
     Dates: start: 20180109, end: 20180109
  28. NPH INSULIN [Concomitant]
     Active Substance: INSULIN BEEF
     Dosage: 14 U, UNK
     Route: 058
     Dates: start: 20180119, end: 20180119
  29. INSULIN REGULAR [Concomitant]
     Active Substance: INSULIN NOS
     Dosage: 6 U, UNK
     Route: 058
     Dates: start: 20171203, end: 20171207
  30. SENNOSIDE [Concomitant]
     Active Substance: SENNOSIDES
     Dosage: 2 DF, UNK
     Route: 048
     Dates: start: 20180204, end: 20180204
  31. SODIUM BICARBONATE. [Concomitant]
     Active Substance: SODIUM BICARBONATE
     Indication: SURGERY
     Dosage: 40 ML, UNK
     Route: 042
     Dates: start: 20171218, end: 20171218
  32. VENACALO-B6 [Concomitant]
     Active Substance: CALCIUM BROMIDE\DIPHENHYDRAMINE HYDROCHLORIDE\PYRIDOXINE HYDROCHLORIDE
     Dosage: 1 DF, UNK
     Route: 042
     Dates: start: 20180113, end: 20180113
  33. TASIGNA [Suspect]
     Active Substance: NILOTINIB
     Dosage: 150 MG, UNK
     Route: 048
     Dates: start: 20160615, end: 20160628
  34. GLUCOPHAGE [Concomitant]
     Active Substance: METFORMIN HYDROCHLORIDE
     Dosage: 500 MG, UNK
     Route: 048
     Dates: start: 20180126, end: 20180128
  35. INSULIN ASPART [Concomitant]
     Active Substance: INSULIN ASPART
     Dosage: 1 U, UNK
     Route: 058
     Dates: start: 20180106, end: 20180106
  36. MAGNESIUM OXIDE. [Concomitant]
     Active Substance: MAGNESIUM OXIDE
     Indication: ABDOMINAL DISCOMFORT
     Dosage: 250 MG, UNK
     Route: 048
     Dates: start: 20171115, end: 20171116
  37. NOVOMIX [Concomitant]
     Active Substance: INSULIN ASPART
     Indication: DIABETES MELLITUS
     Dosage: 10 U, UNK
     Route: 058
     Dates: start: 20180105, end: 20180105
  38. NOVOMIX [Concomitant]
     Active Substance: INSULIN ASPART
     Dosage: 18 U, UNK
     Route: 058
     Dates: start: 20180111, end: 20180112
  39. INSULIN REGULAR [Concomitant]
     Active Substance: INSULIN NOS
     Indication: DIABETES MELLITUS
     Dosage: 4 U, UNK
     Route: 058
     Dates: start: 20171126
  40. INSULIN REGULAR [Concomitant]
     Active Substance: INSULIN NOS
     Dosage: 4 U, UNK
     Route: 042
     Dates: start: 20180215, end: 20180216
  41. SENNOSIDE [Concomitant]
     Active Substance: SENNOSIDES
     Dosage: 1 DF, UNK
     Route: 048
     Dates: start: 20180112, end: 20180118
  42. SILYMARIN [Concomitant]
     Active Substance: DIETARY SUPPLEMENT\HERBALS\MILK THISTLE
     Dosage: 150 MG, UNK
     Route: 048
     Dates: start: 20180204, end: 20180205
  43. SODIUM BICARBONATE. [Concomitant]
     Active Substance: SODIUM BICARBONATE
     Indication: DEPRESSED LEVEL OF CONSCIOUSNESS
     Dosage: 40 ML, UNK
     Route: 042
     Dates: start: 20171123, end: 20171123
  44. ULCERIN [Concomitant]
     Indication: ABDOMINAL DISCOMFORT
     Dosage: 1 DF, UNK
     Route: 048
     Dates: start: 20171113, end: 20171122
  45. VENACALO-B6 [Concomitant]
     Active Substance: CALCIUM BROMIDE\DIPHENHYDRAMINE HYDROCHLORIDE\PYRIDOXINE HYDROCHLORIDE
     Dosage: 1 DF, UNK
     Route: 042
     Dates: start: 20180105, end: 20180105
  46. VENACALO-B6 [Concomitant]
     Active Substance: CALCIUM BROMIDE\DIPHENHYDRAMINE HYDROCHLORIDE\PYRIDOXINE HYDROCHLORIDE
     Dosage: 1 DF, UNK
     Route: 042
     Dates: start: 20180215, end: 20180215
  47. TASIGNA [Suspect]
     Active Substance: NILOTINIB
     Dosage: 150 MG, UNK
     Route: 048
     Dates: start: 20161109, end: 20170131
  48. ACETYLCYSTEINE. [Concomitant]
     Active Substance: ACETYLCYSTEINE
     Dosage: 200 MG, UNK
     Route: 048
     Dates: start: 20180205, end: 20180213
  49. ACETYLCYSTEINE. [Concomitant]
     Active Substance: ACETYLCYSTEINE
     Dosage: 600 MG, UNK
     Route: 048
     Dates: start: 20180213, end: 20180217
  50. BENZBROMARONE [Concomitant]
     Active Substance: BENZBROMARONE
     Dosage: 100 MG, UNK
     Route: 048
     Dates: start: 20180205, end: 20180207
  51. DEXAMETHASONE. [Concomitant]
     Active Substance: DEXAMETHASONE
     Indication: INFECTION
     Dosage: UNK
     Route: 061
     Dates: start: 20180203, end: 20180204
  52. SMECTITE [Concomitant]
     Active Substance: MONTMORILLONITE
     Dosage: 3 G, UNK
     Route: 048
     Dates: start: 20180210, end: 20180213
  53. LANSOPRAZOLE. [Concomitant]
     Active Substance: LANSOPRAZOLE
     Dosage: 30 MG, UNK
     Route: 048
     Dates: start: 20180212, end: 20180215
  54. MAGNESIUM OXIDE. [Concomitant]
     Active Substance: MAGNESIUM OXIDE
     Dosage: 250 MG, UNK
     Route: 048
     Dates: start: 20180117, end: 20180126
  55. NOVOMIX [Concomitant]
     Active Substance: INSULIN ASPART
     Dosage: 10 U, UNK
     Route: 058
     Dates: start: 20180124, end: 20180126
  56. NPH INSULIN [Concomitant]
     Active Substance: INSULIN BEEF
     Dosage: 12 U, UNK
     Route: 058
     Dates: start: 20180105, end: 20180105
  57. NPH INSULIN [Concomitant]
     Active Substance: INSULIN BEEF
     Dosage: 6 U, UNK
     Route: 058
     Dates: start: 20180117, end: 20180117
  58. NPH INSULIN [Concomitant]
     Active Substance: INSULIN BEEF
     Dosage: 14 U, UNK
     Route: 058
     Dates: start: 20180123, end: 20180123
  59. SENNOSIDE [Concomitant]
     Active Substance: SENNOSIDES
     Indication: ABDOMINAL DISCOMFORT
     Dosage: 1 DF, UNK
     Route: 048
     Dates: start: 20180110, end: 20180111
  60. SILYMARIN [Concomitant]
     Active Substance: DIETARY SUPPLEMENT\HERBALS\MILK THISTLE
     Dosage: 150 MG, UNK
     Route: 048
     Dates: start: 20180203, end: 20180204
  61. GLUCOSE [Concomitant]
     Active Substance: DEXTROSE
     Dosage: 20 ML, UNK
     Route: 042
     Dates: start: 20180130, end: 20180130
  62. GLUCOSE [Concomitant]
     Active Substance: DEXTROSE
     Dosage: 80 ML, UNK
     Route: 042
     Dates: start: 20180302, end: 20180303
  63. ACETYLCYSTEINE. [Concomitant]
     Active Substance: ACETYLCYSTEINE
     Dosage: 200 MG, UNK
     Route: 048
     Dates: start: 20180121, end: 20180204
  64. ACTRAPID [Concomitant]
     Active Substance: INSULIN HUMAN
     Dosage: 2 U, UNK
     Route: 042
     Dates: start: 20180103, end: 20180103
  65. COLCHICINE. [Concomitant]
     Active Substance: COLCHICINE
     Indication: GOUT
     Dosage: 0.5 MG, UNK
     Route: 048
     Dates: start: 20171116, end: 20171116
  66. COLCHICINE. [Concomitant]
     Active Substance: COLCHICINE
     Dosage: 0.5 MG, UNK
     Route: 048
     Dates: start: 20171219, end: 20180103
  67. DIMETHICONE. [Concomitant]
     Active Substance: DIMETHICONE
     Indication: ABDOMINAL DISCOMFORT
     Dosage: 40 MG, UNK
     Route: 048
     Dates: start: 20180103, end: 20180103
  68. SMECTITE [Concomitant]
     Active Substance: MONTMORILLONITE
     Indication: RESPIRATORY DISORDER
     Dosage: 3 G, UNK
     Route: 048
     Dates: start: 20180209, end: 20180210
  69. INSULIN ASPART [Concomitant]
     Active Substance: INSULIN ASPART
     Dosage: 6 U, UNK
     Route: 042
     Dates: start: 20180216, end: 20180220
  70. INSULIN REGULAR HM [Concomitant]
     Active Substance: INSULIN NOS
     Indication: DIABETES MELLITUS
     Dosage: 6 U, UNK
     Route: 058
     Dates: start: 20171213, end: 20171213
  71. MOSAPRIDE [Concomitant]
     Active Substance: MOSAPRIDE
     Indication: ABDOMINAL DISCOMFORT
     Dosage: 5 MG, UNK
     Route: 048
     Dates: start: 20180107, end: 20180127
  72. NOVOMIX [Concomitant]
     Active Substance: INSULIN ASPART
     Dosage: 20 U, UNK
     Route: 058
     Dates: start: 20180112, end: 20180114
  73. NOVOMIX [Concomitant]
     Active Substance: INSULIN ASPART
     Dosage: 14 U, UNK
     Route: 058
     Dates: start: 20180115, end: 20180118
  74. PANTOPRAZOLE [Concomitant]
     Active Substance: PANTOPRAZOLE
     Dosage: 80 MG, UNK
     Route: 042
     Dates: start: 20180203, end: 20180203
  75. PANTOPRAZOLE [Concomitant]
     Active Substance: PANTOPRAZOLE
     Dosage: 80 MG, UNK
     Route: 042
     Dates: start: 20180215, end: 20180215
  76. TASIGNA [Suspect]
     Active Substance: NILOTINIB
     Dosage: 150 MG, UNK
     Route: 048
     Dates: start: 20161012, end: 20161108
  77. TASIGNA [Suspect]
     Active Substance: NILOTINIB
     Dosage: 150 MG, UNK
     Route: 048
     Dates: start: 20170201, end: 20170523
  78. TASIGNA [Suspect]
     Active Substance: NILOTINIB
     Dosage: 200 MG, UNK
     Route: 048
     Dates: start: 20170524, end: 20180206
  79. GLUCOSE [Concomitant]
     Active Substance: DEXTROSE
     Dosage: 20 ML, UNK
     Route: 042
     Dates: start: 20180126, end: 20180126
  80. ACETYLCYSTEINE. [Concomitant]
     Active Substance: ACETYLCYSTEINE
     Indication: RESPIRATORY DISORDER
     Dosage: 600 MG, UNK
     Route: 048
     Dates: start: 20171209, end: 20180103
  81. ACETYLCYSTEINE. [Concomitant]
     Active Substance: ACETYLCYSTEINE
     Dosage: 200 MG, UNK
     Route: 048
     Dates: start: 20180204, end: 20180205
  82. AMLODIPINE [Concomitant]
     Active Substance: AMLODIPINE BESYLATE
     Indication: HYPERTENSION
     Dosage: 200 MG, UNK
     Route: 048
     Dates: start: 20171117, end: 20171117
  83. COLCHICINE. [Concomitant]
     Active Substance: COLCHICINE
     Dosage: 0.5 MG, UNK
     Route: 048
     Dates: start: 20171201, end: 20171202
  84. SMECTITE [Concomitant]
     Active Substance: MONTMORILLONITE
     Dosage: 3 G, UNK
     Route: 048
     Dates: start: 20180213, end: 20180219
  85. DULCOLAX NOS [Concomitant]
     Active Substance: BISACODYL OR DOCUSATE SODIUM
     Indication: ABDOMINAL DISCOMFORT
     Dosage: 2 DF, UNK
     Route: 048
     Dates: start: 20171208, end: 20171208
  86. DULCOLAX NOS [Concomitant]
     Active Substance: BISACODYL OR DOCUSATE SODIUM
     Dosage: 2 DF, UNK
     Route: 048
     Dates: start: 20171219, end: 20171219
  87. ESOMEPRAZOLE. [Concomitant]
     Active Substance: ESOMEPRAZOLE MAGNESIUM
     Indication: ABDOMINAL DISCOMFORT
     Dosage: 40 MG, UNK
     Route: 048
     Dates: start: 20171214, end: 20171215
  88. HUMAN MONOSULIN [Concomitant]
     Active Substance: INSULIN HUMAN
     Indication: DIABETES MELLITUS
     Dosage: 6 U, UNK
     Route: 058
     Dates: start: 20180116, end: 20180116
  89. INSULIN ASPART [Concomitant]
     Active Substance: INSULIN ASPART
     Dosage: 8 U, UNK
     Route: 042
     Dates: start: 20171221, end: 20171224
  90. MOSAPRIDE [Concomitant]
     Active Substance: MOSAPRIDE
     Dosage: 5 MG, UNK
     Route: 048
     Dates: start: 20180213, end: 20180213
  91. MYCOMB [Concomitant]
     Indication: INFECTION
     Dosage: UNK
     Route: 061
     Dates: start: 20180223
  92. NOVOMIX [Concomitant]
     Active Substance: INSULIN ASPART
     Dosage: 22 U, UNK
     Route: 058
     Dates: start: 20180109, end: 20180111
  93. NOVOMIX [Concomitant]
     Active Substance: INSULIN ASPART
     Dosage: 16 U, UNK
     Route: 058
     Dates: start: 20180114, end: 20180115
  94. NPH INSULIN [Concomitant]
     Active Substance: INSULIN BEEF
     Dosage: 6 U, UNK
     Route: 058
     Dates: start: 20180110, end: 20180110
  95. PHYTOMENADIONE [Concomitant]
     Active Substance: PHYTONADIONE
     Indication: WOUND
     Dosage: 10 MG, UNK
     Route: 042
     Dates: start: 20171224, end: 20171224
  96. INSULIN REGULAR [Concomitant]
     Active Substance: INSULIN NOS
     Dosage: 10 U, UNK
     Route: 058
     Dates: start: 20171129, end: 20171203
  97. SENNOSIDE [Concomitant]
     Active Substance: SENNOSIDES
     Dosage: 2 DF, UNK
     Route: 048
     Dates: start: 20180111, end: 20180112
  98. SODIUM BICARBONATE. [Concomitant]
     Active Substance: SODIUM BICARBONATE
     Dosage: 40 ML, UNK
     Route: 042
     Dates: start: 20171224, end: 20171224
  99. TRANEXAMIC ACID. [Concomitant]
     Active Substance: TRANEXAMIC ACID
     Indication: WOUND
     Dosage: 250 MG, UNK
     Route: 042
     Dates: start: 20171212, end: 20171212
  100. VENACALO-B6 [Concomitant]
     Active Substance: CALCIUM BROMIDE\DIPHENHYDRAMINE HYDROCHLORIDE\PYRIDOXINE HYDROCHLORIDE
     Dosage: 1 DF, UNK
     Route: 042
     Dates: start: 20180107, end: 20180107
  101. TASIGNA [Suspect]
     Active Substance: NILOTINIB
     Dosage: 300 MG, UNK
     Route: 048
     Dates: start: 20160914, end: 20161011
  102. GLUCOSE [Concomitant]
     Active Substance: DEXTROSE
     Dosage: 40 ML, UNK
     Route: 042
     Dates: start: 20180309
  103. DULCOLAX NOS [Concomitant]
     Active Substance: BISACODYL OR DOCUSATE SODIUM
     Dosage: 2 DF, UNK
     Route: 048
     Dates: start: 20171222, end: 20171222
  104. FLEET ENEMA [Concomitant]
     Active Substance: SODIUM PHOSPHATE, DIBASIC\SODIUM PHOSPHATE, MONOBASIC
     Indication: ABDOMINAL DISCOMFORT
     Dosage: 118 ML, UNK
     Route: 048
     Dates: start: 20171212, end: 20171212
  105. GLUCOPHAGE [Concomitant]
     Active Substance: METFORMIN HYDROCHLORIDE
     Dosage: 500 MG, UNK
     Route: 048
     Dates: start: 20180128, end: 20180204
  106. INSULIN ASPART [Concomitant]
     Active Substance: INSULIN ASPART
     Dosage: 8 U, UNK
     Route: 042
     Dates: start: 20171224, end: 20171228
  107. INSULIN ASPART [Concomitant]
     Active Substance: INSULIN ASPART
     Dosage: 4 U, UNK
     Route: 058
     Dates: start: 20180118, end: 20180119
  108. LANSOPRAZOLE. [Concomitant]
     Active Substance: LANSOPRAZOLE
     Indication: ABDOMINAL DISCOMFORT
     Dosage: 30 MG, UNK
     Route: 048
     Dates: start: 20180206, end: 20180207
  109. NPH INSULIN [Concomitant]
     Active Substance: INSULIN BEEF
     Dosage: 6 U, UNK
     Route: 058
     Dates: start: 20180107, end: 20180107
  110. PANTOPRAZOLE [Concomitant]
     Active Substance: PANTOPRAZOLE
     Dosage: 200 MG, UNK
     Route: 042
     Dates: start: 20180203, end: 20180206
  111. VENACALO-B6 [Concomitant]
     Active Substance: CALCIUM BROMIDE\DIPHENHYDRAMINE HYDROCHLORIDE\PYRIDOXINE HYDROCHLORIDE
     Indication: HYPERSENSITIVITY
     Dosage: 1 DF, UNK
     Route: 042
     Dates: start: 20171214, end: 20171215
  112. TASIGNA [Suspect]
     Active Substance: NILOTINIB
     Dosage: 300 MG, UNK
     Route: 048
     Dates: start: 20160629, end: 20160824
  113. GLUCOSE [Concomitant]
     Active Substance: DEXTROSE
     Dosage: 40 ML, UNK
     Route: 042
     Dates: start: 20171121, end: 20171121
  114. ACTRAPID [Concomitant]
     Active Substance: INSULIN HUMAN
     Indication: DIABETES MELLITUS
     Dosage: 14 U, UNK
     Route: 058
     Dates: start: 20171125, end: 20171129
  115. BENZBROMARONE [Concomitant]
     Active Substance: BENZBROMARONE
     Indication: GOUT
     Dosage: 100 MG, UNK
     Route: 048
     Dates: start: 20180130, end: 20180204
  116. BENZBROMARONE [Concomitant]
     Active Substance: BENZBROMARONE
     Dosage: 100 MG, UNK
     Route: 048
     Dates: start: 20180204, end: 20180205
  117. BISACODYL. [Concomitant]
     Active Substance: BISACODYL
     Indication: ABDOMINAL DISCOMFORT
     Dosage: 10 MG, UNK
     Route: 048
     Dates: start: 20180111, end: 20180114
  118. DIMETHICONE. [Concomitant]
     Active Substance: DIMETHICONE
     Dosage: 40 MG, UNK
     Route: 048
     Dates: start: 20180107, end: 20180121
  119. FUROSEMIDE. [Concomitant]
     Active Substance: FUROSEMIDE
     Indication: HYPERTENSION
     Dosage: 40 MG, UNK
     Route: 048
     Dates: start: 20171128, end: 20171128
  120. GLUCOSAMINE HYDROCHLORIDE [Concomitant]
     Active Substance: GLUCOSAMINE HYDROCHLORIDE
     Indication: DIABETES MELLITUS
     Dosage: 500 MG, UNK
     Route: 048
     Dates: start: 20171222, end: 20180103
  121. HUMAN MONOSULIN [Concomitant]
     Active Substance: INSULIN HUMAN
     Dosage: 10 U, UNK
     Route: 058
     Dates: start: 20180126, end: 20180126
  122. KENTAMIN [Concomitant]
     Indication: GOUT
     Dosage: 1 DF, UNK
     Route: 048
     Dates: start: 20171119, end: 20171120
  123. MAGNESIUM OXIDE. [Concomitant]
     Active Substance: MAGNESIUM OXIDE
     Dosage: 250 MG, UNK
     Route: 048
     Dates: start: 20180201, end: 20180202
  124. NOVOMIX [Concomitant]
     Active Substance: INSULIN ASPART
     Dosage: 18 U, UNK
     Route: 058
     Dates: start: 20180106, end: 20180109
  125. NOVOMIX [Concomitant]
     Active Substance: INSULIN ASPART
     Dosage: 18 U, UNK
     Route: 058
     Dates: start: 20180114, end: 20180114
  126. NOVOMIX [Concomitant]
     Active Substance: INSULIN ASPART
     Dosage: 8 U, UNK
     Route: 058
     Dates: start: 20180126, end: 20180128
  127. NPH INSULIN [Concomitant]
     Active Substance: INSULIN BEEF
     Dosage: 4 U, UNK
     Route: 058
     Dates: start: 20180112, end: 20180112
  128. INSULIN REGULAR [Concomitant]
     Active Substance: INSULIN NOS
     Dosage: 6 U, UNK
     Route: 042
     Dates: start: 20180103, end: 20180105
  129. INSULIN REGULAR [Concomitant]
     Active Substance: INSULIN NOS
     Dosage: 6 U, UNK
     Route: 058
     Dates: start: 20181109
  130. SILYMARIN [Concomitant]
     Active Substance: DIETARY SUPPLEMENT\HERBALS\MILK THISTLE
     Indication: HEPATIC STEATOSIS
     Dosage: 150 MG, UNK
     Route: 048
     Dates: start: 20180124, end: 20180203
  131. VENACALO-B6 [Concomitant]
     Active Substance: CALCIUM BROMIDE\DIPHENHYDRAMINE HYDROCHLORIDE\PYRIDOXINE HYDROCHLORIDE
     Dosage: 1 DF, UNK
     Route: 042
     Dates: start: 20180203, end: 20180204
  132. VENACALO-B6 [Concomitant]
     Active Substance: CALCIUM BROMIDE\DIPHENHYDRAMINE HYDROCHLORIDE\PYRIDOXINE HYDROCHLORIDE
     Dosage: 1 DF, UNK
     Route: 042
     Dates: start: 20180114, end: 20180119

REACTIONS (5)
  - Septic shock [Fatal]
  - Depressed level of consciousness [Not Recovered/Not Resolved]
  - Insomnia [Not Recovered/Not Resolved]
  - Respiratory failure [Fatal]
  - Delirium [Not Recovered/Not Resolved]

NARRATIVE: CASE EVENT DATE: 20171116
